FAERS Safety Report 6767254-8 (Version None)
Quarter: 2010Q2

REPORT INFORMATION
  Report Type: 
  Country: None (occurrence: None)
  Receive Date: 20100611
  Receipt Date: 20100611
  Transmission Date: 20101027
  Serious: Yes (Hospitalization)
  Sender: FDA-Public Use
  Company Number: None

PATIENT
  Age: 65 Year
  Sex: Male

DRUGS (1)
  1. AMIODARONE HCL [Suspect]
     Indication: ARRHYTHMIA
     Dosage: 100 MG EVERY DAY PO
     Route: 048
     Dates: start: 20080202, end: 20100512

REACTIONS (2)
  - DYSPNOEA [None]
  - INTERSTITIAL LUNG DISEASE [None]
